FAERS Safety Report 5941099-0 (Version None)
Quarter: 2008Q4

REPORT INFORMATION
  Report Type: 
  Country: None (occurrence: None)
  Receive Date: 20081104
  Receipt Date: 20081021
  Transmission Date: 20090506
  Serious: Yes (Hospitalization)
  Sender: FDA-Public Use
  Company Number: NO-ELI_LILLY_AND_COMPANY-NO200810004892

PATIENT
  Sex: Female

DRUGS (8)
  1. ZYPREXA [Suspect]
     Indication: MANIA
     Dosage: 15 MG, UNK
     Route: 048
     Dates: start: 20080913
  2. HALDOL [Concomitant]
     Dates: start: 20080912
  3. LEVOMEPROMAZINE [Concomitant]
     Dates: start: 20080912
  4. FLUNITRAZEPAM [Concomitant]
     Dates: start: 20080912
  5. EFFEXOR [Concomitant]
     Dates: start: 20080912
  6. RIVOTRIL [Concomitant]
     Indication: AGITATION
     Dosage: 1 MG, DAILY (1/D)
     Route: 048
     Dates: start: 20080913
  7. VALPROATE SODIUM [Concomitant]
     Indication: MANIA
     Dosage: 600 MG, DAILY (1/D)
     Route: 048
     Dates: start: 20080913
  8. SYMBICORT [Concomitant]
     Indication: CHRONIC OBSTRUCTIVE PULMONARY DISEASE
     Dosage: 160 MG, AS NEEDED
     Route: 055

REACTIONS (1)
  - TRANSIENT ISCHAEMIC ATTACK [None]
